FAERS Safety Report 7130150-0 (Version None)
Quarter: 2010Q4

REPORT INFORMATION
  Report Type: 
  Country: None (occurrence: None)
  Receive Date: 20101201
  Receipt Date: 20101117
  Transmission Date: 20110411
  Serious: Yes (Hospitalization)
  Sender: FDA-Public Use
  Company Number: US-RANBAXY-2010US-39578

PATIENT
  Age: 3 Day
  Sex: Male

DRUGS (1)
  1. ZIDOVUDINE [Suspect]
     Indication: PRODUCT USED FOR UNKNOWN INDICATION
     Dosage: 2 MG/KG, BID
     Route: 048

REACTIONS (3)
  - ACCIDENTAL OVERDOSE [None]
  - BLOOD LACTIC ACID INCREASED [None]
  - MEDICATION ERROR [None]
